FAERS Safety Report 12074803 (Version 3)
Quarter: 2017Q3

REPORT INFORMATION
  Report Type: Report from Study
  Country: None (occurrence: CA)
  Receive Date: 20160212
  Receipt Date: 20170829
  Transmission Date: 20171127
  Serious: Yes (Hospitalization)
  Sender: FDA-Public Use
  Company Number: CA-ABBVIE-16K-028-1547697-00

PATIENT
  Age: 32 Year
  Sex: Male
  Weight: 89.8 kg

DRUGS (8)
  1. HUMIRA [Suspect]
     Active Substance: ADALIMUMAB
     Route: 058
     Dates: end: 201706
  2. ASACOL [Concomitant]
     Active Substance: MESALAMINE
     Indication: PRODUCT USED FOR UNKNOWN INDICATION
     Dates: start: 2000, end: 2001
  3. AZATHIOPRINE. [Concomitant]
     Active Substance: AZATHIOPRINE
     Indication: PRODUCT USED FOR UNKNOWN INDICATION
  4. HUMIRA [Suspect]
     Active Substance: ADALIMUMAB
     Route: 058
     Dates: start: 2016, end: 2016
  5. JANUMET XR [Concomitant]
     Active Substance: METFORMIN HYDROCHLORIDE\SITAGLIPTIN PHOSPHATE
     Indication: DIABETES MELLITUS
     Dosage: 50 TO 1000 MG, TWO TABLETS DAILY
     Route: 048
  6. METFORMIN [Concomitant]
     Active Substance: METFORMIN HYDROCHLORIDE
     Indication: PRODUCT USED FOR UNKNOWN INDICATION
  7. PENTASA [Concomitant]
     Active Substance: MESALAMINE
     Indication: PRODUCT USED FOR UNKNOWN INDICATION
     Dates: start: 2001, end: 2002
  8. HUMIRA [Suspect]
     Active Substance: ADALIMUMAB
     Indication: CROHN^S DISEASE
     Route: 058
     Dates: start: 20151124, end: 2016

REACTIONS (57)
  - Dyspnoea [Recovering/Resolving]
  - Tremor [Recovering/Resolving]
  - Hyperventilation [Unknown]
  - Hidradenitis [Recovering/Resolving]
  - Asthenia [Recovering/Resolving]
  - Panic reaction [Recovering/Resolving]
  - Crohn^s disease [Unknown]
  - Weight decreased [Unknown]
  - Asthenia [Unknown]
  - Intestinal mass [Unknown]
  - Eating disorder [Not Recovered/Not Resolved]
  - Cold sweat [Unknown]
  - Hyperhidrosis [Unknown]
  - Stress [Unknown]
  - Palpitations [Not Recovered/Not Resolved]
  - Purulent discharge [Unknown]
  - Crohn^s disease [Unknown]
  - Muscle spasms [Not Recovered/Not Resolved]
  - Influenza like illness [Not Recovered/Not Resolved]
  - Anxiety [Not Recovered/Not Resolved]
  - Depression [Unknown]
  - Nightmare [Unknown]
  - Sinus tachycardia [Unknown]
  - Palpitations [Recovered/Resolved]
  - Tremor [Not Recovered/Not Resolved]
  - Chest pain [Unknown]
  - Abdominal discomfort [Unknown]
  - Rectal abscess [Unknown]
  - Sepsis [Unknown]
  - Chest discomfort [Recovering/Resolving]
  - Pyrexia [Recovered/Resolved with Sequelae]
  - Vomiting [Unknown]
  - Tachycardia [Unknown]
  - Diarrhoea [Not Recovered/Not Resolved]
  - Pyoderma gangrenosum [Unknown]
  - Hyperhidrosis [Recovering/Resolving]
  - Fear of death [Unknown]
  - Poor quality sleep [Unknown]
  - Insomnia [Unknown]
  - Hypoaesthesia [Not Recovered/Not Resolved]
  - Dyspnoea [Not Recovered/Not Resolved]
  - Skin infection [Not Recovered/Not Resolved]
  - Fear [Recovering/Resolving]
  - Dizziness [Recovering/Resolving]
  - Frustration tolerance decreased [Unknown]
  - Weight decreased [Not Recovered/Not Resolved]
  - Emotional distress [Unknown]
  - Abscess [Unknown]
  - Chills [Unknown]
  - Dyspnoea [Unknown]
  - Subcutaneous abscess [Unknown]
  - Panic attack [Unknown]
  - Infection [Not Recovered/Not Resolved]
  - Heart rate increased [Recovering/Resolving]
  - Anhedonia [Unknown]
  - Malaise [Not Recovered/Not Resolved]
  - Arthritis [Recovering/Resolving]

NARRATIVE: CASE EVENT DATE: 2016
